FAERS Safety Report 6161278 (Version 2)
Quarter: 2013Q2

REPORT INFORMATION
  Report Type: Report from Study
  Country: BE (occurrence: BE)
  Receive Date: 20061103
  Receipt Date: 20130618
  Transmission Date: 20140414
  Serious: Yes (Hospitalization)
  Sender: FDA-Public Use
  Company Number: BE-JNJFOC-20061005979

PATIENT
  Age: 36 Year
  Sex: Female
  Weight: 44 kg

DRUGS (7)
  1. INFLIXIMAB [Suspect]
     Indication: CROHN^S DISEASE
     Route: 042
     Dates: start: 20060917, end: 20060917
  2. INFLIXIMAB [Suspect]
     Indication: CROHN^S DISEASE
     Route: 042
     Dates: start: 20060801, end: 20060801
  3. INFLIXIMAB [Suspect]
     Indication: CROHN^S DISEASE
     Route: 042
     Dates: start: 20060701, end: 20060701
  4. INFLIXIMAB [Suspect]
     Indication: CROHN^S DISEASE
     Route: 042
     Dates: start: 20050907, end: 20050907
  5. MERCAPTOPURINE [Concomitant]
     Indication: CROHN^S DISEASE
     Route: 065
     Dates: start: 20060629
  6. VENOFER [Concomitant]
     Indication: IRON DEFICIENCY
     Route: 065
     Dates: start: 20060411
  7. NADROPINE [Concomitant]
     Indication: THROMBOSIS PROPHYLAXIS
     Route: 065
     Dates: start: 20061003

REACTIONS (1)
  - Hyperthyroidism [Recovered/Resolved]
